FAERS Safety Report 7562917-9 (Version None)
Quarter: 2011Q2

REPORT INFORMATION
  Report Type: 
  Country: None (occurrence: None)
  Receive Date: 20110622
  Receipt Date: 20110607
  Transmission Date: 20111010
  Serious: Yes (Hospitalization)
  Sender: FDA-Public Use
  Company Number: US-ROCHE-783398

PATIENT
  Sex: Female

DRUGS (2)
  1. TRASTUZUMAB [Suspect]
     Indication: BREAST CANCER
     Dosage: CYCLE: 3 WEEKS; OVER 90 MIN ON DAY 1
     Route: 042
     Dates: start: 20091014
  2. BLINDED BEVACIZUMAB [Suspect]
     Indication: BREAST CANCER
     Dosage: CYCLE: 3 WEEKS, OVER 30-60 MIN ON DAY 1
     Route: 042
     Dates: start: 20091014

REACTIONS (3)
  - CONVULSION [None]
  - POSTERIOR REVERSIBLE ENCEPHALOPATHY SYNDROME [None]
  - HYPERTENSION [None]
